FAERS Safety Report 8595876-0 (Version None)
Quarter: 2012Q3

REPORT INFORMATION
  Report Type: 
  Country: None (occurrence: None)
  Receive Date: 20120815
  Receipt Date: 20120809
  Transmission Date: 20120928
  Serious: Yes (Hospitalization, Disabling)
  Sender: FDA-Public Use
  Company Number: IT-ROCHE-1100027

PATIENT
  Age: 57 Year
  Sex: Female

DRUGS (4)
  1. ZELBORAF [Suspect]
     Indication: METASTATIC MALIGNANT MELANOMA
     Route: 065
  2. ZITHROMAX [Concomitant]
     Dates: start: 20120705, end: 20120708
  3. ACETAMINOPHEN [Concomitant]
     Dates: start: 20120705, end: 20120708
  4. NEXIUM [Concomitant]
     Dates: start: 20120705

REACTIONS (1)
  - DYSPHAGIA [None]
